FAERS Safety Report 25675394 (Version 1)
Quarter: 2025Q3

REPORT INFORMATION
  Report Type: Spontaneous
  Country: CN (occurrence: CN)
  Receive Date: 20250813
  Receipt Date: 20250813
  Transmission Date: 20251020
  Serious: Yes (Hospitalization)
  Sender: COHERUS
  Company Number: CN-SHANGHAI JUNSHI BIOSCIENCES CO., LTD.-CN2025015210

PATIENT

DRUGS (4)
  1. TORIPALIMAB [Suspect]
     Active Substance: TORIPALIMAB
     Indication: Tongue neoplasm malignant stage unspecified
     Route: 041
     Dates: start: 20250422
  2. TORIPALIMAB [Suspect]
     Active Substance: TORIPALIMAB
     Route: 041
     Dates: start: 20250625
  3. CARBOPLATIN [Suspect]
     Active Substance: CARBOPLATIN
     Indication: Tongue neoplasm malignant stage unspecified
     Dates: start: 20250422
  4. CARBOPLATIN [Suspect]
     Active Substance: CARBOPLATIN
     Dates: start: 20250625

REACTIONS (1)
  - Myelosuppression [Recovering/Resolving]

NARRATIVE: CASE EVENT DATE: 20250716
